FAERS Safety Report 8584724-0 (Version None)
Quarter: 2012Q3

REPORT INFORMATION
  Report Type: 
  Country: None (occurrence: None)
  Receive Date: 20120802
  Receipt Date: 20120802
  Transmission Date: 20120928
  Serious: No
  Sender: FDA-Public Use
  Company Number: None

PATIENT
  Sex: Male
  Weight: 85.2 kg

DRUGS (1)
  1. INTRON A [Suspect]
     Dosage: 794.2 MG
     Dates: end: 20111128

REACTIONS (1)
  - BLOOD PHOSPHORUS DECREASED [None]
